FAERS Safety Report 8035478-8 (Version None)
Quarter: 2012Q1

REPORT INFORMATION
  Report Type: 
  Country: None (occurrence: None)
  Receive Date: 20120110
  Receipt Date: 20120110
  Transmission Date: 20120608
  Serious: Yes (Hospitalization)
  Sender: FDA-Public Use
  Company Number: None

PATIENT
  Sex: Male
  Weight: 91.3544 kg

DRUGS (2)
  1. TOPROL-XL [Suspect]
     Indication: INVESTIGATION
     Dosage: SINGLE ORAL DOSE
     Route: 048
     Dates: start: 20111220
  2. METOPROLOL SUCCINATE [Suspect]
     Indication: INVESTIGATION
     Dosage: SINGLE ORAL DOSE
     Route: 048
     Dates: start: 20111213

REACTIONS (1)
  - ABDOMINAL PAIN [None]
